FAERS Safety Report 10612979 (Version 3)
Quarter: 2014Q4

REPORT INFORMATION
  Report Type: Spontaneous
  Country: JP (occurrence: JP)
  Receive Date: 20141127
  Receipt Date: 20141218
  Transmission Date: 20150529
  Serious: Yes (Other)
  Sender: FDA-Public Use
  Company Number: PHJP2014JP001343

PATIENT
  Age: 55 Year
  Sex: Female

DRUGS (2)
  1. KAKKONTO [Suspect]
     Active Substance: HERBALS
     Indication: NASOPHARYNGITIS
     Route: 048
  2. TEGRETOL [Suspect]
     Active Substance: CARBAMAZEPINE
     Indication: PRODUCT USED FOR UNKNOWN INDICATION
     Route: 048

REACTIONS (2)
  - Drug eruption [Unknown]
  - Bipolar I disorder [Unknown]
